FAERS Safety Report 23749737 (Version 1)
Quarter: 2024Q2

REPORT INFORMATION
  Report Type: Spontaneous
  Country: US (occurrence: US)
  Receive Date: 20240416
  Receipt Date: 20240416
  Transmission Date: 20240716
  Serious: No
  Sender: FDA-Public Use
  Company Number: US-009507513-2404USA000800

PATIENT
  Age: 68 Year
  Sex: Male

DRUGS (5)
  1. TRUSOPT [Suspect]
     Active Substance: DORZOLAMIDE HYDROCHLORIDE
     Indication: Angle closure glaucoma
     Dosage: 1 DROP OU
     Route: 047
     Dates: start: 202211
  2. DIAMOX SEQUELS [Concomitant]
     Active Substance: ACETAZOLAMIDE
     Indication: Angle closure glaucoma
     Dosage: 500 MILLIGRAM
     Route: 048
     Dates: start: 202211
  3. ALPHAGAN P [Concomitant]
     Active Substance: BRIMONIDINE TARTRATE
     Indication: Angle closure glaucoma
     Dosage: ONE DROP IN BOTH EYES (OU)
     Route: 047
     Dates: start: 202211
  4. PILOCARPINE [Concomitant]
     Active Substance: PILOCARPINE
     Indication: Angle closure glaucoma
     Dosage: ONE DROP OU
     Route: 047
     Dates: start: 202211
  5. LATANOPROST [Concomitant]
     Active Substance: LATANOPROST
     Indication: Angle closure glaucoma
     Dosage: ONE DROP OU
     Route: 047
     Dates: start: 202211

REACTIONS (1)
  - Product use in unapproved indication [Unknown]

NARRATIVE: CASE EVENT DATE: 20221101
